FAERS Safety Report 20332582 (Version 2)
Quarter: 2022Q1

REPORT INFORMATION
  Report Type: Spontaneous
  Country: US (occurrence: US)
  Receive Date: 20220113
  Receipt Date: 20220321
  Transmission Date: 20220424
  Serious: Yes (Hospitalization, Other)
  Sender: FDA-Public Use
  Company Number: US-NOVARTISPH-NVSC2022US004026

PATIENT

DRUGS (9)
  1. ARGATROBAN [Suspect]
     Active Substance: ARGATROBAN
     Indication: Foetal exposure during pregnancy
     Dosage: MATERNAL DOSE AT EXPOSURE: UNK
     Route: 064
  2. CEFTRIAXONE [Suspect]
     Active Substance: CEFTRIAXONE
     Indication: Foetal exposure during pregnancy
     Dosage: MATERNAL DOSE AT EXPOSURE: UNK
     Route: 064
  3. AZITHROMYCIN [Suspect]
     Active Substance: AZITHROMYCIN
     Indication: Foetal exposure during pregnancy
     Dosage: MATERNAL DOSE AT EXPOSURE: UNK
     Route: 064
  4. CEFAZOLIN [Suspect]
     Active Substance: CEFAZOLIN
     Indication: Foetal exposure during pregnancy
     Dosage: MATERNAL DOSE AT EXPOSURE: UNK
     Route: 064
  5. DEXAMETHASONE [Suspect]
     Active Substance: DEXAMETHASONE
     Indication: Foetal exposure during pregnancy
     Dosage: MATERNAL DOSE AT EXPOSURE: UNK
     Route: 064
  6. HEPARIN [Suspect]
     Active Substance: HEPARIN SODIUM
     Indication: Foetal exposure during pregnancy
     Dosage: MATERNAL DOSE AT EXPOSURE: UNK
     Route: 064
  7. OXYTOCIN [Suspect]
     Active Substance: OXYTOCIN
     Indication: Foetal exposure during pregnancy
     Dosage: (MATERNAL DOSE AT EXPOSURE: 30 UNITS)
     Route: 064
  8. MISOPROSTOL [Suspect]
     Active Substance: MISOPROSTOL
     Indication: Foetal exposure during pregnancy
     Dosage: (MATERNAL DOSE AT EXPOSURE 800 UG)
     Route: 064
  9. TRANEXAMIC ACID [Suspect]
     Active Substance: TRANEXAMIC ACID
     Indication: Foetal exposure during pregnancy
     Dosage: (MATERNAL DOSE AT EXPOSURE 1 G)
     Route: 064

REACTIONS (4)
  - Neonatal respiratory distress syndrome [Unknown]
  - Anaemia neonatal [Unknown]
  - Premature baby [Unknown]
  - Foetal exposure during pregnancy [Unknown]
